FAERS Safety Report 25543819 (Version 1)
Quarter: 2025Q3

REPORT INFORMATION
  Report Type: Other
  Country: CN (occurrence: CN)
  Receive Date: 20250711
  Receipt Date: 20250711
  Transmission Date: 20251020
  Serious: Yes (Hospitalization, Other)
  Sender: ANI
  Company Number: CN-ANIPHARMA-023436

PATIENT
  Sex: Male

DRUGS (10)
  1. VANCOMYCIN [Suspect]
     Active Substance: VANCOMYCIN
     Indication: Antibiotic prophylaxis
  2. CEFAZOLIN [Concomitant]
     Active Substance: CEFAZOLIN
     Indication: Infection prophylaxis
  3. DEXAMETHASONE [Concomitant]
     Active Substance: DEXAMETHASONE
     Indication: Inflammation
  4. TROPICAMIDE [Concomitant]
     Active Substance: TROPICAMIDE
     Indication: Mydriasis
  5. ATROPINE [Concomitant]
     Active Substance: ATROPINE
     Indication: Mydriasis
  6. LEVOFLOXACIN [Concomitant]
     Active Substance: LEVOFLOXACIN
     Indication: Antibiotic prophylaxis
  7. TOBRAMYCIN AND DEXAMETHASONE [Concomitant]
     Active Substance: DEXAMETHASONE\TOBRAMYCIN
     Indication: Antiinflammatory therapy
  8. TOBRAMYCIN AND DEXAMETHASONE [Concomitant]
     Active Substance: DEXAMETHASONE\TOBRAMYCIN
     Indication: Antibiotic therapy
  9. TOBRAMYCIN AND DEXAMETHASONE [Concomitant]
     Active Substance: DEXAMETHASONE\TOBRAMYCIN
     Indication: Antifungal treatment
  10. VANCOMYCIN [Suspect]
     Active Substance: VANCOMYCIN
     Indication: Antibiotic prophylaxis

REACTIONS (2)
  - Retinal artery occlusion [Recovering/Resolving]
  - Hypoperfusion [Recovering/Resolving]

NARRATIVE: CASE EVENT DATE: 20231101
